FAERS Safety Report 6788687-X (Version None)
Quarter: 2010Q2

REPORT INFORMATION
  Report Type: 
  Country: None (occurrence: None)
  Receive Date: 20100623
  Receipt Date: 20080415
  Transmission Date: 20101027
  Serious: No
  Sender: FDA-Public Use
  Company Number: US-PFIZER INC-2008033234

PATIENT
  Sex: Female

DRUGS (5)
  1. XALATAN [Suspect]
     Indication: GLAUCOMA
     Dates: start: 20080301
  2. CYCLOBENZAPRINE [Concomitant]
  3. ALPHAGAN [Concomitant]
  4. DRUG, UNSPECIFIED [Concomitant]
  5. SYNTHROID [Concomitant]

REACTIONS (1)
  - EYE IRRITATION [None]
